FAERS Safety Report 4697378-0 (Version None)
Quarter: 2005Q2

REPORT INFORMATION
  Report Type: 
  Country: None (occurrence: None)
  Receive Date: 20050621
  Receipt Date: 20050607
  Transmission Date: 20051028
  Serious: Yes (Hospitalization, Disabling, Other)
  Sender: FDA-Public Use
  Company Number: 2005-0008369

PATIENT
  Age: 45 Year
  Sex: Male

DRUGS (9)
  1. TRUVADA [Suspect]
     Indication: HIV INFECTION
     Dosage: 1 DOSAGE FORMS, 1 IN 1 D, ORAL
     Route: 048
     Dates: start: 20041019, end: 20050301
  2. RITONAVIR (RITONAVIR) [Concomitant]
  3. INDINAVIR (INDINAVIR) [Concomitant]
  4. ALLOPURINOL [Concomitant]
  5. TRICOR [Concomitant]
  6. PAXIL [Concomitant]
  7. PLENDIL [Concomitant]
  8. TESTOSTERONE (TESTOSTERONE) (INJECTION) [Concomitant]
  9. AVAPRO [Concomitant]

REACTIONS (4)
  - HAEMODIALYSIS [None]
  - RENAL FAILURE ACUTE [None]
  - RENAL INTERSTITIAL FIBROSIS [None]
  - RENAL TUBULAR ATROPHY [None]
